FAERS Safety Report 8578999-1 (Version None)
Quarter: 2012Q3

REPORT INFORMATION
  Report Type: 
  Country: None (occurrence: None)
  Receive Date: 20120808
  Receipt Date: 20120731
  Transmission Date: 20120928
  Serious: Yes (Life-Threatening, Hospitalization, Other)
  Sender: FDA-Public Use
  Company Number: FR-PFIZER INC-2012190932

PATIENT
  Age: 74 Year
  Sex: Male

DRUGS (5)
  1. OMEPRAZOLE [Concomitant]
     Dosage: UNK
  2. CORDARONE [Suspect]
     Indication: PRODUCT USED FOR UNKNOWN INDICATION
     Dosage: UNK
     Route: 048
     Dates: end: 20120301
  3. VALACYCLOVIR HYDROCHLORIDE [Concomitant]
     Dosage: UNK
  4. DIGOXIN [Suspect]
     Indication: PRODUCT USED FOR UNKNOWN INDICATION
     Dosage: UNK
     Route: 048
     Dates: start: 20120301, end: 20120301
  5. HYDROCORTISONE [Concomitant]
     Dosage: UNK

REACTIONS (6)
  - OVERDOSE [None]
  - BLOOD PRESSURE DECREASED [None]
  - RALES [None]
  - BRADYCARDIA [None]
  - RENAL FAILURE [None]
  - CARDIOACTIVE DRUG LEVEL INCREASED [None]
